FAERS Safety Report 4502105-3 (Version None)
Quarter: 2004Q4

REPORT INFORMATION
  Report Type: 
  Country: None (occurrence: None)
  Receive Date: 20041116
  Receipt Date: 20041109
  Transmission Date: 20050328
  Serious: Yes (Death)
  Sender: FDA-Public Use
  Company Number: BE-JNJFOC-20041007338

PATIENT
  Age: 73 Year
  Sex: Male

DRUGS (3)
  1. PROPULSID [Suspect]
     Route: 049
     Dates: start: 20040422, end: 20040710
  2. OMEPRAZOLE [Concomitant]
     Indication: OESOPHAGITIS
     Route: 049
     Dates: start: 20000101, end: 20040710
  3. CLEXANE [Concomitant]
     Route: 050
     Dates: start: 20040707, end: 20040710

REACTIONS (2)
  - CEREBROVASCULAR ACCIDENT [None]
  - PERITONITIS [None]
